FAERS Safety Report 25645471 (Version 1)
Quarter: 2025Q3

REPORT INFORMATION
  Report Type: Spontaneous
  Country: CH (occurrence: CH)
  Receive Date: 20250805
  Receipt Date: 20250805
  Transmission Date: 20251021
  Serious: Yes (Hospitalization, Other)
  Sender: NOVARTIS
  Company Number: None

PATIENT
  Age: 54 Year
  Sex: Female
  Weight: 46.6 kg

DRUGS (22)
  1. CERTICAN [Interacting]
     Active Substance: EVEROLIMUS
     Indication: Product used for unknown indication
     Dosage: 1.5 MG, Q12H
     Route: 048
     Dates: start: 202306, end: 20250424
  2. CERTICAN [Interacting]
     Active Substance: EVEROLIMUS
     Dosage: 0.25 MG, QD
     Route: 048
     Dates: start: 20250502, end: 20250612
  3. CERTICAN [Interacting]
     Active Substance: EVEROLIMUS
     Dosage: 0.25 MG, QD
     Route: 048
     Dates: start: 20250616
  4. CETUXIMAB [Suspect]
     Active Substance: CETUXIMAB
     Indication: Product used for unknown indication
     Dosage: 700 MG, BIW
     Route: 042
     Dates: start: 20250403
  5. KRAZATI [Interacting]
     Active Substance: ADAGRASIB
     Indication: Product used for unknown indication
     Route: 048
     Dates: start: 20250417, end: 20250612
  6. KRAZATI [Interacting]
     Active Substance: ADAGRASIB
     Dosage: 3 DOSAGE FORM, Q12H
     Route: 048
     Dates: start: 20250616, end: 20250618
  7. KRAZATI [Interacting]
     Active Substance: ADAGRASIB
     Dosage: 2 DOSAGE FORM, Q12H
     Route: 048
     Dates: start: 20250619
  8. TACROLIMUS [Interacting]
     Active Substance: TACROLIMUS
     Indication: Product used for unknown indication
     Dosage: 1.5 MG, QD
     Route: 048
     Dates: start: 202306, end: 20250425
  9. TACROLIMUS [Interacting]
     Active Substance: TACROLIMUS
     Dosage: 1 MG, QD
     Route: 048
     Dates: start: 20250502, end: 20250612
  10. TACROLIMUS [Interacting]
     Active Substance: TACROLIMUS
     Dosage: 0.2 MG, Q12H
     Route: 048
     Dates: start: 20250621
  11. CALCIUM\CHOLECALCIFEROL [Concomitant]
     Active Substance: CALCIUM\CHOLECALCIFEROL
     Indication: Product used for unknown indication
     Dosage: 1 DOSAGE FORM, QD
     Route: 048
  12. Omeprax [Concomitant]
     Indication: Product used for unknown indication
     Dosage: 20 MG, QD
     Route: 048
  13. SODIUM PICOSULFATE [Concomitant]
     Active Substance: SODIUM PICOSULFATE
     Indication: Product used for unknown indication
     Route: 065
  14. Zoledronsaeure [Concomitant]
     Indication: Product used for unknown indication
     Dosage: 1 DOSAGE FORM, Q12MO
     Route: 065
     Dates: end: 202408
  15. VIBRAMYCIN [Concomitant]
     Active Substance: DOXYCYCLINE
     Indication: Product used for unknown indication
     Dosage: 100 MG, Q12H
     Route: 048
     Dates: start: 20250422, end: 20250426
  16. MORPHINE SULFATE [Concomitant]
     Active Substance: MORPHINE SULFATE
     Indication: Product used for unknown indication
     Dosage: 10 MG, Q12H (RETARD)
     Route: 048
  17. METAMIZOLE [Concomitant]
     Active Substance: METAMIZOLE
     Indication: Product used for unknown indication
     Dosage: 500 MG, Q6H
     Route: 048
  18. MORPHINE HYDROCHLORIDE [Concomitant]
     Active Substance: MORPHINE HYDROCHLORIDE
     Indication: Product used for unknown indication
     Route: 065
  19. MOVICOL [Concomitant]
     Active Substance: POLYETHYLENE GLYCOL 3350\POTASSIUM CHLORIDE\SODIUM BICARBONATE\SODIUM CHLORIDE
     Indication: Product used for unknown indication
     Route: 065
  20. Loperamid mepha [Concomitant]
     Indication: Product used for unknown indication
     Route: 065
  21. ONDANSETRON [Concomitant]
     Active Substance: ONDANSETRON
     Indication: Product used for unknown indication
     Route: 065
  22. Paspertin [Concomitant]
     Indication: Product used for unknown indication
     Route: 065

REACTIONS (5)
  - Gastrointestinal disorder [Recovering/Resolving]
  - Acute kidney injury [Recovering/Resolving]
  - Potentiating drug interaction [Recovering/Resolving]
  - Anaemia [Recovering/Resolving]
  - Thrombocytopenia [Recovering/Resolving]

NARRATIVE: CASE EVENT DATE: 20250423
